FAERS Safety Report 24888670 (Version 1)
Quarter: 2025Q1

REPORT INFORMATION
  Report Type: Spontaneous
  Country: ZA (occurrence: ZA)
  Receive Date: 20250127
  Receipt Date: 20250127
  Transmission Date: 20250409
  Serious: Yes (Hospitalization)
  Sender: BAYER HEALTHCARE PHARMACEUTICALS INC.
  Company Number: ZA-BAYER-2025A008315

PATIENT
  Age: 51 Year
  Sex: Female

DRUGS (25)
  1. ANGELIQ [Suspect]
     Active Substance: DROSPIRENONE\ESTRADIOL
     Dosage: 1 DF, QD
     Route: 048
  2. VOMIDON [Concomitant]
     Indication: Nausea
     Dosage: 10 MG, TID
     Route: 048
  3. VOMIDON [Concomitant]
     Indication: Vomiting
  4. LAMOTRIGINE [Concomitant]
     Active Substance: LAMOTRIGINE
     Indication: Epilepsy
     Dosage: 25 MG, BID
     Route: 048
  5. LAMOTRIGINE [Concomitant]
     Active Substance: LAMOTRIGINE
     Indication: Epilepsy
     Dosage: 50 MG, BID
     Route: 048
  6. VALPROIC ACID [Concomitant]
     Active Substance: VALPROIC ACID
     Indication: Epilepsy
     Dosage: 500 MG, BID
     Route: 048
  7. VORTIOXETINE HYDROBROMIDE [Concomitant]
     Active Substance: VORTIOXETINE HYDROBROMIDE
     Indication: Depression
     Dosage: 5 MG, QD
     Route: 048
  8. ATORVASTATIN [Concomitant]
     Active Substance: ATORVASTATIN
     Indication: Blood cholesterol
     Dosage: 20 MG, QD
     Route: 048
  9. CLOBAZAM [Concomitant]
     Active Substance: CLOBAZAM
     Indication: Anxiety
     Dosage: 10 MG, QD
     Route: 048
  10. PREGABALIN [Concomitant]
     Active Substance: PREGABALIN
     Indication: Epilepsy
     Dosage: 25 MG, TID
     Route: 048
  11. TERBINAFINE HYDROCHLORIDE [Concomitant]
     Active Substance: TERBINAFINE HYDROCHLORIDE
     Dosage: UNK UNK, QD
     Route: 048
  12. TRAMADOL HYDROCHLORIDE [Concomitant]
     Active Substance: TRAMADOL HYDROCHLORIDE
     Indication: Pain
     Route: 048
  13. CITALOPRAM HYDROBROMIDE [Concomitant]
     Active Substance: CITALOPRAM HYDROBROMIDE
     Indication: Psychiatric care
     Dosage: 20 MG, QD
     Route: 048
  14. CORENZA C [Concomitant]
     Dosage: 1 DF, TID
     Route: 048
  15. PREGABALIN [Concomitant]
     Active Substance: PREGABALIN
     Indication: Epilepsy
     Dosage: 25 MG, BID
     Route: 048
  16. Vitatech 3in1 vitamin c [Concomitant]
     Dosage: 1000 MG, BID
     Route: 048
  17. Allergex [Concomitant]
     Indication: Hypersensitivity
     Dosage: 2 MG, TID
     Route: 048
  18. NYSTACID [Concomitant]
     Route: 048
  19. Medazine [Concomitant]
     Dosage: 50 MG, TID
     Route: 048
  20. PONAC [Concomitant]
     Dosage: 50 MG, TID
     Route: 048
  21. ACETAMINOPHEN [Concomitant]
     Active Substance: ACETAMINOPHEN
     Dosage: 120 MG, TID
     Route: 048
  22. THIAMINE [Concomitant]
     Active Substance: THIAMINE
     Dosage: 100 MG, QD
     Route: 048
  23. EYE GENE [Concomitant]
     Dosage: UNK UNK, TID
     Route: 061
  24. ACETAMINOPHEN\ORPHENADRINE CITRATE [Concomitant]
     Active Substance: ACETAMINOPHEN\ORPHENADRINE CITRATE
     Dosage: 2 DF, TID
     Route: 048
  25. STREPSILS INTENSIVE [Concomitant]
     Route: 048

REACTIONS (1)
  - Depression [None]

NARRATIVE: CASE EVENT DATE: 20250107
